FAERS Safety Report 20318341 (Version 1)
Quarter: 2022Q1

REPORT INFORMATION
  Report Type: Spontaneous
  Country: US (occurrence: None)
  Receive Date: 20220107
  Receipt Date: 20220107
  Transmission Date: 20220423
  Serious: Yes (Other)
  Sender: FDA-Public Use
  Company Number: None

PATIENT
  Age: 63 Year
  Sex: Male
  Weight: 53 kg

DRUGS (1)
  1. KRYSTEXXA [Suspect]
     Active Substance: PEGLOTICASE
     Indication: Product used for unknown indication

REACTIONS (4)
  - Seizure [None]
  - Vertigo [None]
  - Blood uric acid increased [None]
  - Infusion related reaction [None]

NARRATIVE: CASE EVENT DATE: 20210817
